FAERS Safety Report 5869973-4 (Version None)
Quarter: 2008Q3

REPORT INFORMATION
  Report Type: 
  Country: None (occurrence: None)
  Receive Date: 20080904
  Receipt Date: 20080904
  Transmission Date: 20090109
  Serious: Yes (Hospitalization)
  Sender: FDA-Public Use
  Company Number: PHEH1995US03162

PATIENT
  Sex: Female
  Weight: 66.5 kg

DRUGS (5)
  1. SANDIMMUNE [Suspect]
     Route: 048
     Dates: start: 19941115
  2. PREDNISONE TAB [Concomitant]
     Route: 065
  3. ASPIRIN [Concomitant]
  4. INSULIN [Concomitant]
  5. AZATHIOPRINE [Concomitant]

REACTIONS (4)
  - BACTERIAL INFECTION [None]
  - BLOOD CREATININE INCREASED [None]
  - PYELONEPHRITIS [None]
  - URINARY TRACT INFECTION [None]
